FAERS Safety Report 6707009-3 (Version None)
Quarter: 2010Q2

REPORT INFORMATION
  Report Type: 
  Country: None (occurrence: None)
  Receive Date: 20100430
  Receipt Date: 20100430
  Transmission Date: 20101027
  Serious: Yes (Hospitalization)
  Sender: FDA-Public Use
  Company Number: None

PATIENT
  Age: 81 Year
  Sex: Male

DRUGS (1)
  1. TYGACIL [Suspect]
     Indication: CLOSTRIDIAL INFECTION
     Dosage: 50MG Q12H IV
     Route: 042
     Dates: start: 20090908, end: 20090924

REACTIONS (1)
  - CHOLESTASIS [None]
